FAERS Safety Report 5288999-5 (Version None)
Quarter: 2007Q1

REPORT INFORMATION
  Report Type: 
  Country: None (occurrence: None)
  Receive Date: 20070118
  Receipt Date: 20061204
  Transmission Date: 20070707
  Serious: Yes (Other)
  Sender: FDA-Public Use
  Company Number: HQWYE698208DEC06

PATIENT
  Age: 62 Year
  Sex: Female
  Weight: 59.02 kg

DRUGS (2)
  1. ADVIL PM [Suspect]
     Indication: INSOMNIA
     Dosage: 2 TABLET 1X PER 1 DAY, ORAL
     Route: 048
     Dates: start: 20061201, end: 20061201
  2. ATENOLOL [Concomitant]

REACTIONS (2)
  - ABDOMINAL PAIN [None]
  - RESTLESS LEGS SYNDROME [None]
